FAERS Safety Report 19955141 (Version 1)
Quarter: 2021Q4

REPORT INFORMATION
  Report Type: Spontaneous
  Country: US (occurrence: US)
  Receive Date: 20211014
  Receipt Date: 20211014
  Transmission Date: 20220303
  Serious: Yes (Other)
  Sender: FDA-Public Use
  Company Number: US-MYLANLABS-2021M1072622

PATIENT
  Age: 25 Year
  Sex: Female

DRUGS (7)
  1. CLONAZEPAM [Suspect]
     Active Substance: CLONAZEPAM
     Indication: Back pain
     Dosage: ORAL MEDICATIONS RECEIVED AS SC INJECTION
     Route: 058
  2. ACETAMINOPHEN [Suspect]
     Active Substance: ACETAMINOPHEN
     Indication: Back pain
     Dosage: ORAL MEDICATIONS RECEIVED AS SC INJECTION
     Route: 058
  3. ALPRAZOLAM [Suspect]
     Active Substance: ALPRAZOLAM
     Indication: Product used for unknown indication
     Dosage: ORAL MEDICATIONS RECEIVED AS SC INJECTION
     Route: 058
  4. TRAMADOL [Suspect]
     Active Substance: TRAMADOL
     Indication: Back pain
     Dosage: UNK
     Route: 058
  5. CYCLOBENZAPRINE [Suspect]
     Active Substance: CYCLOBENZAPRINE
     Indication: Back pain
     Dosage: ORAL MEDICATIONS RECEIVED AS SC INJECTION
     Route: 058
  6. HYDROCODONE BITARTRATE [Suspect]
     Active Substance: HYDROCODONE BITARTRATE
     Indication: Back pain
     Dosage: ORAL MEDICATIONS RECEIVED AS SC INJECTION
     Route: 058
  7. OXYCODONE AND ACETAMINOPHEN [Suspect]
     Active Substance: ACETAMINOPHEN\OXYCODONE HYDROCHLORIDE
     Indication: Back pain
     Dosage: ORAL MEDICATIONS RECEIVED AS SC INJECTION
     Route: 058

REACTIONS (2)
  - Drug abuse [Recovered/Resolved]
  - Panniculitis [Recovered/Resolved]
